FAERS Safety Report 20438619 (Version 2)
Quarter: 2023Q2

REPORT INFORMATION
  Report Type: Report from Study
  Country: US (occurrence: None)
  Receive Date: 20220207
  Receipt Date: 20230501
  Transmission Date: 20230721
  Serious: Yes (Other)
  Sender: FDA-Public Use
  Company Number: US-ROCHE-2945691

PATIENT
  Age: 29 Year
  Sex: Female
  Weight: 70 kg

DRUGS (3)
  1. OCRELIZUMAB [Suspect]
     Active Substance: OCRELIZUMAB
     Indication: Relapsing-remitting multiple sclerosis
     Dosage: THE FIRST DOSE OF OCRELIZUMAB WILL BE ADMINISTERED AS TWO 300 MG IV INFUSIONS GIVEN 14 DAYS APART. F
     Route: 042
     Dates: start: 20211021
  2. DIPHENHYDRAMINE [Concomitant]
     Active Substance: DIPHENHYDRAMINE
     Dosage: INDICATION: STUDY DRUG REACTION
     Route: 042
     Dates: start: 20211021, end: 20211021
  3. DEXAMETHASONE [Concomitant]
     Active Substance: DEXAMETHASONE
     Route: 042
     Dates: start: 20211021, end: 20211021

REACTIONS (1)
  - Suicidal ideation [Recovered/Resolved]

NARRATIVE: CASE EVENT DATE: 20211024
